FAERS Safety Report 12416441 (Version 4)
Quarter: 2018Q1

REPORT INFORMATION
  Report Type: Spontaneous
  Country: US (occurrence: US)
  Receive Date: 20160530
  Receipt Date: 20180305
  Transmission Date: 20180508
  Serious: Yes (Other)
  Sender: FDA-Public Use
  Company Number: US-PFIZER INC-2016270568

PATIENT
  Age: 21 Year
  Sex: Female

DRUGS (4)
  1. MISOPROSTOL. [Suspect]
     Active Substance: MISOPROSTOL
     Indication: POSTPARTUM HAEMORRHAGE
     Dosage: 800 UG, UNK
     Route: 054
  2. OXYTOCIN. [Concomitant]
     Active Substance: OXYTOCIN
     Dosage: 20 MG, UNK
     Route: 030
  3. LIDOCAINE. [Concomitant]
     Active Substance: LIDOCAINE
     Indication: LOCAL ANAESTHESIA
     Dosage: 1 %, UNK
  4. IBUPROFEN. [Concomitant]
     Active Substance: IBUPROFEN
     Dosage: 800 MG, UNK

REACTIONS (4)
  - Product use in unapproved indication [Unknown]
  - Encephalopathy [Recovered/Resolved]
  - Tachycardia [Recovering/Resolving]
  - Hyperpyrexia [Recovered/Resolved]
